FAERS Safety Report 18953035 (Version 1)
Quarter: 2021Q1

REPORT INFORMATION
  Report Type: Spontaneous
  Country: JP (occurrence: JP)
  Receive Date: 20210301
  Receipt Date: 20210301
  Transmission Date: 20210420
  Serious: Yes (Hospitalization)
  Sender: FDA-Public Use
  Company Number: JP-COVIS PHARMA GMBH-2021COV00089

PATIENT
  Age: 61 Year
  Sex: Male

DRUGS (1)
  1. RILUZOLE. [Suspect]
     Active Substance: RILUZOLE
     Indication: AMYOTROPHIC LATERAL SCLEROSIS
     Dosage: 100 MG, 1X/DAY
     Route: 065

REACTIONS (2)
  - Interstitial lung disease [Unknown]
  - Pneumomediastinum [Recovered/Resolved]
